FAERS Safety Report 5701377-7 (Version None)
Quarter: 2008Q2

REPORT INFORMATION
  Report Type: 
  Country: None (occurrence: None)
  Receive Date: 20080407
  Receipt Date: 20080331
  Transmission Date: 20081010
  Serious: Yes (Death, Disabling)
  Sender: FDA-Public Use
  Company Number: 167-C5013-07070152

PATIENT
  Age: 58 Year
  Sex: Female
  Weight: 53 kg

DRUGS (7)
  1. CC-5013 (LENALIDOMIDE) (CAPSULES) [Suspect]
     Indication: MULTIPLE MYELOMA
     Dosage: 25 MG, DAILY, 3 WEEKS OUT OF EVERY 4, ORAL
     Route: 048
     Dates: start: 20070514, end: 20070621
  2. ERYTHROPOIETIN (ERYTHROPOIETIN) [Suspect]
     Indication: DRUG USE FOR UNKNOWN INDICATION
  3. DEXAMETHASONE TAB [Concomitant]
  4. PAMIDRONATE DISODIUM [Concomitant]
  5. DARBEPOETIN (DARBEPOETIN ALFA) [Concomitant]
  6. MORPHINE SULFATE [Concomitant]
  7. OMEPRAZOLE [Concomitant]

REACTIONS (6)
  - DEEP VEIN THROMBOSIS [None]
  - DISEASE COMPLICATION [None]
  - FALL [None]
  - PULMONARY EMBOLISM [None]
  - RESPIRATORY ARREST [None]
  - SUDDEN DEATH [None]
